FAERS Safety Report 5481555-5 (Version None)
Quarter: 2007Q4

REPORT INFORMATION
  Report Type: 
  Country: None (occurrence: None)
  Receive Date: 20071005
  Receipt Date: 20071005
  Transmission Date: 20080405
  Serious: Yes (Hospitalization)
  Sender: FDA-Public Use
  Company Number: None

PATIENT
  Sex: Male
  Weight: 85.9 kg

DRUGS (1)
  1. ALIMTA [Suspect]
     Dosage: 975 MG
     Dates: start: 20070913

REACTIONS (2)
  - DEHYDRATION [None]
  - DIARRHOEA [None]
